FAERS Safety Report 24455325 (Version 2)
Quarter: 2024Q4

REPORT INFORMATION
  Report Type: Report from Study
  Country: US (occurrence: US)
  Receive Date: 20241017
  Receipt Date: 20241018
  Transmission Date: 20250115
  Serious: No
  Sender: ROCHE
  Company Number: US-ROCHE-3476143

PATIENT
  Age: 49 Year
  Sex: Male

DRUGS (3)
  1. RITUXAN [Suspect]
     Active Substance: RITUXIMAB
     Indication: Cerebral disorder
     Dosage: REPEAT EVERY 6 MONTHS
     Route: 041
  2. RITUXAN [Suspect]
     Active Substance: RITUXIMAB
     Indication: Demyelination
  3. RITUXAN [Suspect]
     Active Substance: RITUXIMAB
     Indication: Blood test abnormal

REACTIONS (2)
  - Off label use [Unknown]
  - No adverse event [Unknown]
